FAERS Safety Report 5390119-3 (Version None)
Quarter: 2007Q3

REPORT INFORMATION
  Report Type: 
  Country: None (occurrence: None)
  Receive Date: 20070718
  Receipt Date: 20070709
  Transmission Date: 20080115
  Serious: Yes (Other)
  Sender: FDA-Public Use
  Company Number: B0479546A

PATIENT
  Age: 50 Year
  Sex: Female
  Weight: 70 kg

DRUGS (5)
  1. FLIXONASE [Suspect]
     Route: 065
     Dates: start: 20070622, end: 20070622
  2. AMOXICILLIN + CLAVULANATE POTASSIUM [Concomitant]
     Route: 048
     Dates: start: 20070521
  3. CO-PROXAMOL [Concomitant]
     Route: 048
     Dates: start: 19950101
  4. DIAZEPAM [Concomitant]
     Route: 048
     Dates: start: 20070615
  5. DICLOFENAC [Concomitant]
     Route: 061
     Dates: start: 20070424

REACTIONS (2)
  - PRURITUS [None]
  - SWOLLEN TONGUE [None]
